FAERS Safety Report 20824021 (Version 1)
Quarter: 2022Q2

REPORT INFORMATION
  Report Type: Spontaneous
  Country: AR (occurrence: AR)
  Receive Date: 20220513
  Receipt Date: 20220513
  Transmission Date: 20220721
  Serious: Yes (Other)
  Sender: FDA-Public Use
  Company Number: AR-SA-SAC20211028000569

PATIENT
  Sex: Female

DRUGS (3)
  1. ENOXAPARIN SODIUM [Suspect]
     Active Substance: ENOXAPARIN SODIUM
     Indication: Hypercoagulation
     Dosage: 40 MG, QD
     Route: 058
     Dates: start: 20211020, end: 20220101
  2. ASPIRIN [Suspect]
     Active Substance: ASPIRIN
     Dosage: 150 MG, QD
     Route: 048
     Dates: start: 202107
  3. MINERALS\VITAMINS [Suspect]
     Active Substance: MINERALS\VITAMINS
     Indication: Supplementation therapy
     Dosage: 1 DF, QD
     Route: 048

REACTIONS (4)
  - Placental insufficiency [Unknown]
  - Ultrasound uterus abnormal [Unknown]
  - Maternal exposure during pregnancy [Unknown]
  - Product use in unapproved indication [Unknown]

NARRATIVE: CASE EVENT DATE: 20211020
